FAERS Safety Report 8304887-1 (Version None)
Quarter: 2012Q2

REPORT INFORMATION
  Report Type: 
  Country: None (occurrence: None)
  Receive Date: 20120423
  Receipt Date: 20120410
  Transmission Date: 20120825
  Serious: Yes (Hospitalization)
  Sender: FDA-Public Use
  Company Number: US-ROCHE-1059152

PATIENT
  Sex: Female

DRUGS (15)
  1. AYGESTIN [Concomitant]
  2. EFFEXOR [Concomitant]
  3. DUONEB [Concomitant]
  4. SKELAXIN [Concomitant]
  5. PRILOSEC [Concomitant]
  6. SINGULAIR [Concomitant]
  7. XOPENEX [Concomitant]
  8. XOLAIR [Suspect]
     Indication: ASTHMA
     Route: 058
     Dates: start: 20111221
  9. XOLAIR [Suspect]
     Route: 058
     Dates: start: 20120326
  10. FLUNISOLIDE NASAL SPRAY [Concomitant]
  11. PERCOCET [Concomitant]
  12. ADVAIR DISKUS 100/50 [Concomitant]
  13. ALLEGRA [Concomitant]
  14. KLONOPIN [Concomitant]
  15. ZANTAC [Concomitant]

REACTIONS (1)
  - IDIOPATHIC THROMBOCYTOPENIC PURPURA [None]
